FAERS Safety Report 21522477 (Version 1)
Quarter: 2022Q4

REPORT INFORMATION
  Report Type: Report from Study
  Country: US (occurrence: US)
  Receive Date: 20221029
  Receipt Date: 20221029
  Transmission Date: 20230113
  Serious: No
  Sender: FDA-Public Use
  Company Number: US-ABBVIE-4177271

PATIENT
  Sex: Male

DRUGS (15)
  1. VENCLEXTA [Suspect]
     Active Substance: VENETOCLAX
     Indication: Acute myeloid leukaemia
     Route: 048
     Dates: start: 20220721
  2. Pantoprazole Sodium Oral Tablet Del 40 mg [Concomitant]
     Indication: Product used for unknown indication
     Route: 048
  3. Centrum Silver Oral Tablet [Concomitant]
     Indication: Product used for unknown indication
     Route: 048
  4. levoFLOXacin Oral Tablet 500 MG [Concomitant]
     Indication: Product used for unknown indication
     Route: 048
  5. amLODIPine Besylate Oral Tablet 5 MG [Concomitant]
     Indication: Product used for unknown indication
     Route: 048
  6. Allopurinol Oral Tablet 100 MG [Concomitant]
     Indication: Product used for unknown indication
     Route: 048
  7. Atorvastatin Calcium Oral Tablet 80 mg [Concomitant]
     Indication: Product used for unknown indication
     Route: 048
  8. Acyclovir Oral Tablet 800 MG [Concomitant]
     Indication: Product used for unknown indication
     Route: 048
  9. Spironolactone Oral Tablet 25 MG [Concomitant]
     Indication: Product used for unknown indication
     Route: 048
  10. Ranexa Oral Tablet Extended Release [Concomitant]
     Indication: Product used for unknown indication
  11. Aspirin Adult Low Dose Oral Tablet 81 mg [Concomitant]
     Indication: Product used for unknown indication
     Route: 048
  12. Isosorbide Dinitrate Oral Tablet 60 mg [Concomitant]
     Indication: Product used for unknown indication
     Route: 048
  13. Plavix Oral Tablet 75 MG [Concomitant]
     Indication: Product used for unknown indication
     Route: 048
  14. Fluconazole Oral Tablet 200 MG [Concomitant]
     Indication: Product used for unknown indication
     Route: 048
  15. Furosemide Oral Tablet 20 MG [Concomitant]
     Indication: Product used for unknown indication
     Route: 048

REACTIONS (2)
  - Dysphonia [Unknown]
  - Fatigue [Unknown]
